FAERS Safety Report 4469822-5 (Version None)
Quarter: 2004Q4

REPORT INFORMATION
  Report Type: 
  Country: None (occurrence: None)
  Receive Date: 20041008
  Receipt Date: 20041005
  Transmission Date: 20050328
  Serious: Yes (Hospitalization)
  Sender: FDA-Public Use
  Company Number: NL-GLAXOSMITHKLINE-B0347332A

PATIENT

DRUGS (1)
  1. FLUTICASONE PROPIONATE [Suspect]
     Indication: PAROSMIA
     Dosage: 400MCG PER DAY
     Route: 045
     Dates: start: 20040501, end: 20040701

REACTIONS (4)
  - CENTRAL NERVOUS SYSTEM INFECTION [None]
  - EPISTAXIS [None]
  - INFECTION [None]
  - INFLAMMATION LOCALISED [None]
